FAERS Safety Report 5251237-3 (Version None)
Quarter: 2007Q1

REPORT INFORMATION
  Report Type: 
  Country: None (occurrence: None)
  Receive Date: 20070228
  Receipt Date: 20070103
  Transmission Date: 20070707
  Serious: No
  Sender: FDA-Public Use
  Company Number: US-GLAXOSMITHKLINE-A0631339A

PATIENT
  Age: 56 Year
  Sex: Female
  Weight: 113.6 kg

DRUGS (1)
  1. LAMICTAL [Suspect]
     Indication: BIPOLAR DISORDER
     Dosage: 25MG UNKNOWN
     Route: 048
     Dates: start: 20060922, end: 20061002

REACTIONS (3)
  - PYREXIA [None]
  - RASH [None]
  - SINUS HEADACHE [None]
